FAERS Safety Report 11044471 (Version 3)
Quarter: 2015Q3

REPORT INFORMATION
  Report Type: Spontaneous
  Country: US (occurrence: US)
  Receive Date: 20150417
  Receipt Date: 20150909
  Transmission Date: 20151125
  Serious: Yes (Life-Threatening, Hospitalization)
  Sender: FDA-Public Use
  Company Number: US-BAYER-2015-137506

PATIENT
  Age: 27 Year
  Sex: Female
  Weight: 65.76 kg

DRUGS (5)
  1. SERTRALINE [Concomitant]
     Active Substance: SERTRALINE HYDROCHLORIDE
  2. ALPRAZOLAM. [Concomitant]
     Active Substance: ALPRAZOLAM
  3. MIRENA [Suspect]
     Active Substance: LEVONORGESTREL
     Indication: CONTRACEPTION
     Dosage: 20 MCG/24HR, CONT
     Route: 015
     Dates: start: 20100625, end: 20100630
  4. GABAPENTIN. [Concomitant]
     Active Substance: GABAPENTIN
     Indication: FIBROMYALGIA
     Dosage: UNK
     Dates: start: 2005
  5. WELLBUTRIN [Concomitant]
     Active Substance: BUPROPION HYDROCHLORIDE
     Indication: DEPRESSION
     Dosage: UNK
     Dates: start: 2000, end: 2010

REACTIONS (9)
  - Injury [None]
  - Procedural pain [None]
  - Vaginal haemorrhage [None]
  - Device dislocation [None]
  - Abdominal pain [None]
  - Urinary tract infection [None]
  - Device issue [None]
  - General physical health deterioration [None]
  - Infection [None]

NARRATIVE: CASE EVENT DATE: 201006
